FAERS Safety Report 6941443-1 (Version None)
Quarter: 2010Q3

REPORT INFORMATION
  Report Type: 
  Country: None (occurrence: None)
  Receive Date: 20100825
  Receipt Date: 20100811
  Transmission Date: 20110219
  Serious: Yes (Other)
  Sender: FDA-Public Use
  Company Number: US-MYLANLABS-2010S1014709

PATIENT
  Age: 32 Year
  Sex: Female
  Weight: 89.81 kg

DRUGS (5)
  1. FENTANYL CITRATE [Suspect]
     Indication: BACK PAIN
     Dosage: CHANGED Q72H
     Route: 062
     Dates: start: 20100721, end: 20100808
  2. OXYCODONE [Concomitant]
     Indication: BREAKTHROUGH PAIN
     Dates: start: 20100501
  3. HUMULIN /00646001/ [Concomitant]
     Indication: DIABETES MELLITUS
  4. ALBUTEROL [Concomitant]
     Indication: ASTHMA
     Route: 055
  5. LANTUS /01483501/ [Concomitant]
     Indication: DIABETES MELLITUS

REACTIONS (3)
  - BACK PAIN [None]
  - DRUG EFFECT DECREASED [None]
  - DRUG WITHDRAWAL SYNDROME [None]
